FAERS Safety Report 17672529 (Version 9)
Quarter: 2022Q1

REPORT INFORMATION
  Report Type: Spontaneous
  Country: BE (occurrence: BE)
  Receive Date: 20200415
  Receipt Date: 20220225
  Transmission Date: 20220423
  Serious: Yes (Life-Threatening, Hospitalization)
  Sender: FDA-Public Use
  Company Number: BE-CELGENE-BEL-20200403905

PATIENT
  Age: 71 Year
  Sex: Female

DRUGS (28)
  1. AZACITIDINE [Suspect]
     Active Substance: AZACITIDINE
     Indication: Acute myeloid leukaemia
     Dosage: 75 MILLIGRAM/SQ.METER
     Route: 058
     Dates: start: 20180410, end: 20180923
  2. AZACITIDINE [Suspect]
     Active Substance: AZACITIDINE
     Dosage: 37.5 MILLIGRAM/SQ.METER
     Route: 058
     Dates: start: 20181105, end: 20200315
  3. Venetoclax (Verum) [Concomitant]
     Indication: Acute myeloid leukaemia
     Dosage: 100 MILLIGRAM
     Route: 048
     Dates: start: 20180410, end: 20180410
  4. Venetoclax (Verum) [Concomitant]
     Dosage: 200 MILLIGRAM
     Route: 048
     Dates: start: 20180411, end: 20180411
  5. Venetoclax (Verum) [Concomitant]
     Dosage: 400 MILLIGRAM
     Route: 048
     Dates: start: 20180412, end: 20200329
  6. ALLOPURINOL [Concomitant]
     Active Substance: ALLOPURINOL
     Indication: Blood uric acid increased
     Route: 048
     Dates: start: 20180406, end: 20180508
  7. ALLOPURINOL [Concomitant]
     Active Substance: ALLOPURINOL
     Indication: Prophylaxis
     Dosage: 300 MILLIGRAM
     Route: 048
     Dates: start: 20180718, end: 20180807
  8. ALLOPURINOL [Concomitant]
     Active Substance: ALLOPURINOL
     Dosage: 300 MILLIGRAM
     Route: 048
     Dates: start: 20180808, end: 20181019
  9. ALLOPURINOL [Concomitant]
     Active Substance: ALLOPURINOL
     Dosage: 300 MILLIGRAM
     Route: 048
     Dates: start: 20180509, end: 20180618
  10. ALLOPURINOL [Concomitant]
     Active Substance: ALLOPURINOL
     Dosage: 300 MILLIGRAM
     Route: 048
     Dates: start: 20190924, end: 20200408
  11. SODIUM CHLORIDE [Concomitant]
     Active Substance: SODIUM CHLORIDE
     Indication: Prophylaxis
     Route: 041
     Dates: start: 20180410, end: 20180420
  12. FOLIC ACID [Concomitant]
     Active Substance: FOLIC ACID
     Indication: Folate deficiency
     Dosage: 4 MILLIGRAM
     Route: 048
     Dates: start: 201803
  13. ALIZAPRIDE HYDROCHLORIDE [Concomitant]
     Active Substance: ALIZAPRIDE HYDROCHLORIDE
     Indication: Nausea
     Dosage: 50 MILLIGRAM
     Route: 041
     Dates: start: 20180327
  14. MOVICOL [Concomitant]
     Active Substance: POLYETHYLENE GLYCOL 3350\POTASSIUM CHLORIDE\SODIUM BICARBONATE\SODIUM CHLORIDE
     Indication: Constipation
     Dosage: 1 SACHET
     Route: 048
     Dates: start: 20180327
  15. IMODIUM [Concomitant]
     Active Substance: LOPERAMIDE HYDROCHLORIDE
     Indication: Diarrhoea
     Dosage: 2 MILLIGRAM
     Route: 048
     Dates: start: 20180330
  16. ZOFRAN [Concomitant]
     Active Substance: ONDANSETRON HYDROCHLORIDE
     Indication: Prophylaxis of nausea and vomiting
     Dosage: 8 MILLIGRAM
     Route: 048
     Dates: start: 20180410
  17. Tradonal Odis [Concomitant]
     Indication: Wound
     Dosage: 50 MILLIGRAM
     Route: 048
     Dates: start: 20180423
  18. ACYCLOVIR [Concomitant]
     Active Substance: ACYCLOVIR
     Indication: Antiviral prophylaxis
     Dosage: 400 MILLIGRAM
     Route: 048
     Dates: start: 20180413, end: 20180504
  19. ACYCLOVIR [Concomitant]
     Active Substance: ACYCLOVIR
     Dosage: 800 MILLIGRAM
     Route: 048
     Dates: start: 20180505
  20. Befact Forte [Concomitant]
     Indication: Vitamin supplementation
     Dosage: 1
     Route: 048
     Dates: start: 20180611
  21. Calci-Bone D3 [Concomitant]
     Indication: Hypocalcaemia
     Dosage: 1000/880 MG
     Route: 048
     Dates: start: 20181011
  22. AMLODIPINE [Concomitant]
     Active Substance: AMLODIPINE BESYLATE
     Indication: Hypertension
     Dosage: 10 MILLIGRAM
     Route: 048
     Dates: start: 20180403, end: 20181010
  23. AMLODIPINE [Concomitant]
     Active Substance: AMLODIPINE BESYLATE
     Dosage: 10 MILLIGRAM
     Route: 048
     Dates: start: 20181014
  24. LISINOPRIL [Concomitant]
     Active Substance: LISINOPRIL
     Indication: Hypertension
     Dosage: 5 MILLIGRAM
     Route: 048
     Dates: start: 20181016, end: 20200407
  25. DIPROSONE [Concomitant]
     Active Substance: BETAMETHASONE DIPROPIONATE
     Indication: Wound
     Route: 061
     Dates: start: 20190110
  26. Ultra-Magnesium [Concomitant]
     Indication: Muscle spasms
     Dosage: 6 GRAM
     Route: 048
     Dates: start: 20180917
  27. POTASSIUM PERMANGANATE [Concomitant]
     Active Substance: POTASSIUM PERMANGANATE
     Indication: Wound
     Route: 061
     Dates: start: 20190802, end: 20200407
  28. Aluminiumoxide/ Magnesiumhydroxide [Concomitant]
     Indication: Nausea
     Dosage: 200/400 MG AS REQUIRED
     Route: 048
     Dates: start: 20200210

REACTIONS (1)
  - COVID-19 [Recovered/Resolved]

NARRATIVE: CASE EVENT DATE: 20200408
